FAERS Safety Report 22074721 (Version 2)
Quarter: 2023Q1

REPORT INFORMATION
  Report Type: Report from Study
  Country: GB (occurrence: GB)
  Receive Date: 20230308
  Receipt Date: 20230313
  Transmission Date: 20230417
  Serious: Yes (Death, Life-Threatening, Hospitalization, Other)
  Sender: FDA-Public Use
  Company Number: GB-002147023-NVSC2022GB020982

PATIENT
  Age: 75 Year
  Sex: Female
  Weight: 39.8 kg

DRUGS (17)
  1. LUTATHERA [Suspect]
     Active Substance: LUTETIUM OXODOTREOTIDE LU-177
     Indication: Neuroendocrine tumour
     Dosage: UNK
     Route: 065
     Dates: start: 20191031
  2. LUTATHERA [Suspect]
     Active Substance: LUTETIUM OXODOTREOTIDE LU-177
     Indication: Gastroenteropancreatic neuroendocrine tumour disease
     Dosage: 7893 MG
     Route: 042
     Dates: start: 20200123
  3. VANCOMYCIN [Concomitant]
     Active Substance: VANCOMYCIN
     Indication: Infection
     Dosage: UNK
     Route: 042
     Dates: start: 20201025, end: 20201028
  4. DALTEPARIN [Concomitant]
     Active Substance: DALTEPARIN
     Indication: Infection
     Dosage: UNK
     Route: 058
     Dates: start: 20201025, end: 20201025
  5. EZETIMIBE [Concomitant]
     Active Substance: EZETIMIBE
     Indication: Infection
     Dosage: UNK
     Route: 048
     Dates: start: 20201025, end: 20201029
  6. ROSUVASTATIN [Concomitant]
     Active Substance: ROSUVASTATIN
     Indication: Infection
     Dosage: UNK
     Route: 048
     Dates: start: 20201025, end: 20201029
  7. LOPERAMIDE [Concomitant]
     Active Substance: LOPERAMIDE
     Indication: Infection
     Dosage: UNK
     Route: 048
     Dates: start: 20201025, end: 20201030
  8. KCL [Concomitant]
     Active Substance: POTASSIUM CHLORIDE
     Indication: Infection
     Dosage: UNK (40 MMOL PER LITRE KCL IN SODIUM CHLORIDE 0.9% INFUSION)
     Route: 042
     Dates: start: 20201026, end: 20201026
  9. OMEPRAZOLE [Concomitant]
     Active Substance: OMEPRAZOLE
     Indication: Infection
     Dosage: UNK
     Route: 048
     Dates: start: 20201026, end: 20201030
  10. SERTRALINE [Concomitant]
     Active Substance: SERTRALINE HYDROCHLORIDE
     Indication: Infection
     Dosage: UNK
     Route: 048
     Dates: start: 20201026, end: 20201030
  11. CARBOPLATIN [Concomitant]
     Active Substance: CARBOPLATIN
     Indication: Product used for unknown indication
     Dosage: UNK
     Route: 042
     Dates: start: 201210, end: 201301
  12. ETOPOSIDE [Concomitant]
     Active Substance: ETOPOSIDE
     Indication: Product used for unknown indication
     Dosage: UNK
     Route: 042
     Dates: start: 201210, end: 201301
  13. TEICOPLANIN [Concomitant]
     Active Substance: TEICOPLANIN
     Indication: Infection
     Dosage: UNK
     Route: 042
     Dates: start: 20201030, end: 20201030
  14. SODIUM CHLORIDE ^ACO^ [Concomitant]
     Indication: Product used for unknown indication
     Dosage: UNK
     Route: 065
  15. SODIUM CHLORIDE ^ACO^ [Concomitant]
     Dosage: 50 ML
     Route: 065
  16. FELODIPINE [Concomitant]
     Active Substance: FELODIPINE
     Indication: Essential hypertension
     Dosage: UNK
     Route: 048
     Dates: start: 20190718
  17. ISOPHANE INSULIN [Concomitant]
     Active Substance: INSULIN NOS
     Indication: Type 2 diabetes mellitus
     Dosage: UNK
     Route: 058
     Dates: end: 20220419

REACTIONS (11)
  - Death [Fatal]
  - Pancytopenia [Not Recovered/Not Resolved]
  - Malaise [Not Recovered/Not Resolved]
  - Fatigue [Not Recovered/Not Resolved]
  - Lethargy [Not Recovered/Not Resolved]
  - Nausea [Not Recovered/Not Resolved]
  - Sepsis [Recovered/Resolved]
  - Anaemia [Recovered/Resolved]
  - Malignant neoplasm progression [Not Recovered/Not Resolved]
  - Gastroenteropancreatic neuroendocrine tumour disease [Not Recovered/Not Resolved]
  - Anaemia [Recovered/Resolved]

NARRATIVE: CASE EVENT DATE: 20200213
